FAERS Safety Report 7355057-5 (Version None)
Quarter: 2011Q1

REPORT INFORMATION
  Report Type: 
  Country: None (occurrence: None)
  Receive Date: 20110316
  Receipt Date: 20110316
  Transmission Date: 20110831
  Serious: Yes (Other)
  Sender: FDA-Public Use
  Company Number: None

PATIENT
  Age: 54 Year
  Sex: Female
  Weight: 52.1637 kg

DRUGS (2)
  1. ALCOHOL PADS [Suspect]
  2. FLOLAN [Suspect]
     Indication: PULMONARY ARTERIAL HYPERTENSION
     Dosage: 23 NG PER KG PER MIN IV CONTINUOUS INFUSION
     Route: 042
     Dates: start: 20030101

REACTIONS (5)
  - PAIN [None]
  - PRODUCT QUALITY ISSUE [None]
  - MEDICAL DEVICE COMPLICATION [None]
  - ERYTHEMA [None]
  - INFECTION [None]
